FAERS Safety Report 6443879-4 (Version None)
Quarter: 2009Q4

REPORT INFORMATION
  Report Type: 
  Country: None (occurrence: None)
  Receive Date: 20091117
  Receipt Date: 20091111
  Transmission Date: 20100525
  Serious: Yes (Life-Threatening, Hospitalization)
  Sender: FDA-Public Use
  Company Number: US-MERCK-0910USA01963

PATIENT
  Age: 51 Year
  Sex: Female

DRUGS (8)
  1. ZOLINZA [Suspect]
     Indication: EOSINOPHILIA
     Route: 048
     Dates: start: 20090801, end: 20090930
  2. MEDROL [Concomitant]
     Route: 048
  3. XANAX [Concomitant]
     Indication: ANXIETY
     Route: 065
  4. XANAX [Concomitant]
     Indication: POOR QUALITY SLEEP
     Route: 065
  5. INTERFERON ALFA [Concomitant]
     Route: 065
  6. FOSAMAX [Concomitant]
     Indication: OSTEOPOROSIS
     Route: 065
  7. FUROSEMIDE [Concomitant]
     Indication: OEDEMA
     Route: 065
  8. HYDROXYZINE [Concomitant]
     Route: 065

REACTIONS (12)
  - ABDOMINAL PAIN [None]
  - ANAEMIA POSTOPERATIVE [None]
  - DIARRHOEA [None]
  - HYPOCALCAEMIA [None]
  - HYPOMAGNESAEMIA [None]
  - INTESTINAL ISCHAEMIA [None]
  - MESENTERIC VEIN THROMBOSIS [None]
  - METABOLIC ACIDOSIS [None]
  - MUSCLE SPASMS [None]
  - OFF LABEL USE [None]
  - RESPIRATORY FAILURE [None]
  - UNDERDOSE [None]
